FAERS Safety Report 7416805-9 (Version None)
Quarter: 2011Q1

REPORT INFORMATION
  Report Type: 
  Country: None (occurrence: None)
  Receive Date: 20110302
  Receipt Date: 20101117
  Transmission Date: 20110831
  Serious: No
  Sender: FDA-Public Use
  Company Number: 019665

PATIENT
  Sex: Male
  Weight: 79.4 kg

DRUGS (1)
  1. CIMZIA [Suspect]
     Indication: CROHN'S DISEASE
     Dosage: 400 MG 1X/MONTH SUBCUTANEOUS
     Route: 058
     Dates: start: 20100820, end: 20100927

REACTIONS (5)
  - INFLUENZA [None]
  - DRUG INEFFECTIVE [None]
  - ARTHRALGIA [None]
  - PYREXIA [None]
  - COUGH [None]
